FAERS Safety Report 8380075-8 (Version None)
Quarter: 2012Q2

REPORT INFORMATION
  Report Type: 
  Country: None (occurrence: None)
  Receive Date: 20120523
  Receipt Date: 20120507
  Transmission Date: 20120825
  Serious: Yes (Hospitalization)
  Sender: FDA-Public Use
  Company Number: JP-GLAXOSMITHKLINE-B0702133A

PATIENT
  Sex: Male
  Weight: 83 kg

DRUGS (5)
  1. VALPROATE SODIUM [Concomitant]
     Dosage: 800MG PER DAY
     Route: 048
  2. LAMICTAL [Suspect]
     Indication: EPILEPSY
     Dosage: 25MG TWICE PER DAY
     Route: 048
     Dates: start: 20110130, end: 20110209
  3. VALPROATE SODIUM [Concomitant]
     Indication: EPILEPSY
     Route: 048
     Dates: start: 20060826
  4. LAMICTAL [Suspect]
     Dosage: 25MG PER DAY
     Route: 048
     Dates: start: 20110210, end: 20110221
  5. PROHEPARUM [Concomitant]
     Indication: HEPATIC FUNCTION ABNORMAL
     Dosage: 4IUAX PER DAY
     Route: 048
     Dates: start: 20110130, end: 20110221

REACTIONS (14)
  - RASH [None]
  - EPIDERMAL NECROSIS [None]
  - CONJUNCTIVAL EROSION [None]
  - ORAL MUCOSA EROSION [None]
  - SKIN OEDEMA [None]
  - SKIN EROSION [None]
  - PERIVASCULAR DERMATITIS [None]
  - GENERALISED ERYTHEMA [None]
  - TOXIC EPIDERMAL NECROLYSIS [None]
  - SKIN EXFOLIATION [None]
  - PYREXIA [None]
  - VULVAR EROSION [None]
  - BLISTER [None]
  - MALAISE [None]
